FAERS Safety Report 6003940-5 (Version None)
Quarter: 2008Q4

REPORT INFORMATION
  Report Type: 
  Country: None (occurrence: None)
  Receive Date: 20081216
  Receipt Date: 20081205
  Transmission Date: 20090506
  Serious: Yes (Other)
  Sender: FDA-Public Use
  Company Number: JP-BRISTOL-MYERS SQUIBB COMPANY-14442024

PATIENT
  Age: 34 Year
  Sex: Male
  Weight: 63 kg

DRUGS (7)
  1. ABILIFY [Suspect]
     Indication: SCHIZOPHRENIA
     Dosage: FORMULATION-POWDER
     Route: 048
     Dates: start: 20081021, end: 20081023
  2. SEROQUEL [Concomitant]
  3. LULLAN [Concomitant]
  4. BIPERIDEN HYDROCHLORIDE TAB [Concomitant]
  5. ROHYPNOL [Concomitant]
  6. PANTOSIN [Concomitant]
  7. MAGNESIUM OXIDE [Concomitant]

REACTIONS (1)
  - SCHIZOPHRENIA [None]
